FAERS Safety Report 24339218 (Version 2)
Quarter: 2024Q3

REPORT INFORMATION
  Report Type: Spontaneous
  Country: US (occurrence: US)
  Receive Date: 20240919
  Receipt Date: 20240920
  Transmission Date: 20241017
  Serious: Yes (Other)
  Sender: PFIZER
  Company Number: US-PFIZER INC-202400228043

PATIENT
  Age: 54 Year
  Sex: Female
  Weight: 83.46 kg

DRUGS (5)
  1. VELSIPITY [Suspect]
     Active Substance: ETRASIMOD ARGININE
     Indication: Colitis ulcerative
     Dosage: 200 MG
  2. VELSIPITY [Suspect]
     Active Substance: ETRASIMOD ARGININE
     Dosage: 6 PILLS A DAY
  3. VELSIPITY [Suspect]
     Active Substance: ETRASIMOD ARGININE
     Dosage: 6 PILLS A DAY FOR A WEEK THEN 5 PILLS
  4. VELSIPITY [Suspect]
     Active Substance: ETRASIMOD ARGININE
     Dosage: 1 PILL A DAY
  5. VELSIPITY [Suspect]
     Active Substance: ETRASIMOD ARGININE
     Dosage: 2 MG

REACTIONS (7)
  - Haematochezia [Recovering/Resolving]
  - Colitis [Unknown]
  - Drug ineffective [Unknown]
  - Product prescribing error [Unknown]
  - Diarrhoea [Recovering/Resolving]
  - Haemorrhage [Recovering/Resolving]
  - Frequent bowel movements [Recovering/Resolving]
